FAERS Safety Report 14652947 (Version 1)
Quarter: 2018Q1

REPORT INFORMATION
  Report Type: Spontaneous
  Country: US (occurrence: US)
  Receive Date: 20180319
  Receipt Date: 20180319
  Transmission Date: 20180509
  Serious: No
  Sender: FDA-Public Use
  Company Number: US-AUROBINDO-AUR-APU-2017-32567

PATIENT
  Sex: Female

DRUGS (2)
  1. ENALAPRIL [Concomitant]
     Active Substance: ENALAPRIL
     Indication: BLOOD PRESSURE MEASUREMENT
     Route: 065
  2. LAMOTRIGINE TABLETS 200 MG [Suspect]
     Active Substance: LAMOTRIGINE
     Indication: BIPOLAR DISORDER
     Dosage: 200 MG, ONCE A DAY
     Route: 048
     Dates: start: 20170328

REACTIONS (1)
  - Constipation [Not Recovered/Not Resolved]
